FAERS Safety Report 22395435 (Version 1)
Quarter: 2023Q2

REPORT INFORMATION
  Report Type: Spontaneous
  Country: US (occurrence: US)
  Receive Date: 20230601
  Receipt Date: 20230601
  Transmission Date: 20230722
  Serious: No
  Sender: FDA-Public Use
  Company Number: US-APIL-2308128US

PATIENT
  Age: 24 Year
  Sex: Female
  Weight: 83.46 kg

DRUGS (2)
  1. LILETTA [Suspect]
     Active Substance: LEVONORGESTREL
     Indication: Intermenstrual bleeding
     Dosage: 52 MG, SINGLE
     Route: 015
     Dates: start: 20230310, end: 20230310
  2. IRON [Concomitant]
     Active Substance: IRON
     Indication: Anaemia
     Route: 048

REACTIONS (3)
  - Off label use [Unknown]
  - Dizziness [Recovered/Resolved]
  - Abdominal pain [Recovered/Resolved]

NARRATIVE: CASE EVENT DATE: 20230310
